FAERS Safety Report 24455224 (Version 2)
Quarter: 2024Q4

REPORT INFORMATION
  Report Type: Report from Study
  Country: US (occurrence: US)
  Receive Date: 20241017
  Receipt Date: 20241018
  Transmission Date: 20250115
  Serious: No
  Sender: ROCHE
  Company Number: US-ROCHE-3488635

PATIENT
  Age: 50 Year
  Sex: Female

DRUGS (6)
  1. RITUXAN [Suspect]
     Active Substance: RITUXIMAB
     Indication: Pemphigus
     Dosage: STRENGTH : 500 MG OF 2 QUANTITY ON DAY 01 AND DAY 15
     Route: 042
     Dates: start: 20231115, end: 20231115
  2. CELLCEPT [Suspect]
     Active Substance: MYCOPHENOLATE MOFETIL
     Indication: Pemphigus
     Route: 065
  3. PREDNISONE [Concomitant]
     Active Substance: PREDNISONE
  4. CLOBETASOL [Concomitant]
     Active Substance: CLOBETASOL
  5. MOMETASONE [Concomitant]
     Active Substance: MOMETASONE
  6. TACROLIMUS [Concomitant]
     Active Substance: TACROLIMUS

REACTIONS (2)
  - Off label use [Unknown]
  - No adverse event [Unknown]
